FAERS Safety Report 24028676 (Version 1)
Quarter: 2024Q2

REPORT INFORMATION
  Report Type: Spontaneous
  Country: ZA (occurrence: None)
  Receive Date: 20240628
  Receipt Date: 20240628
  Transmission Date: 20240716
  Serious: Yes (Death)
  Sender: FDA-Public Use
  Company Number: 2024A146956

PATIENT
  Age: 78 Year
  Sex: Male

DRUGS (8)
  1. DAPAGLIFLOZIN PROPANEDIOL [Suspect]
     Active Substance: DAPAGLIFLOZIN PROPANEDIOL
  2. ENALAPRIL [Concomitant]
     Active Substance: ENALAPRIL
  3. CARVEDILOL [Concomitant]
     Active Substance: CARVEDILOL
  4. ECOTRIN [Concomitant]
     Active Substance: ASPIRIN
  5. METFORMIN HYDROCHLORIDE [Concomitant]
     Active Substance: METFORMIN HYDROCHLORIDE
  6. SIMVASTATIN [Concomitant]
     Active Substance: SIMVASTATIN
  7. AMIODARONE [Concomitant]
     Active Substance: AMIODARONE
  8. ESCITALOPRAM [Concomitant]
     Active Substance: ESCITALOPRAM OXALATE

REACTIONS (1)
  - Cardiac failure [Fatal]
